FAERS Safety Report 6596160-7 (Version None)
Quarter: 2010Q1

REPORT INFORMATION
  Report Type: 
  Country: None (occurrence: None)
  Receive Date: 20100219
  Receipt Date: 20100219
  Transmission Date: 20100710
  Serious: Yes (Hospitalization)
  Sender: FDA-Public Use
  Company Number: None

PATIENT
  Age: 30 Year
  Sex: Female
  Weight: 60.78 kg

DRUGS (1)
  1. PHENTERMINE [Suspect]
     Indication: WEIGHT CONTROL
     Dosage: 30 MG EVERY DAY PO
     Route: 048
     Dates: start: 20090501, end: 20090816

REACTIONS (4)
  - AFFECTIVE DISORDER [None]
  - ANXIETY [None]
  - HALLUCINATION, AUDITORY [None]
  - OVERDOSE [None]
